FAERS Safety Report 8930443 (Version 2)
Quarter: 2012Q4

REPORT INFORMATION
  Report Type: 
  Country: US (occurrence: US)
  Receive Date: 20121121
  Receipt Date: 20121212
  Transmission Date: 20130627
  Serious: Yes (Death, Hospitalization, Other)
  Sender: FDA-Public Use
  Company Number: US-ASTELLAS-1089693

PATIENT
  Sex: Male

DRUGS (1)
  1. TARCEVA [Suspect]
     Indication: PANCREATIC CARCINOMA METASTATIC
     Route: 048
     Dates: start: 200908, end: 200908

REACTIONS (3)
  - Performance status decreased [Fatal]
  - Blood glucose decreased [Unknown]
  - Drug intolerance [Unknown]
